FAERS Safety Report 9817801 (Version 2)
Quarter: 2014Q1

REPORT INFORMATION
  Report Type: Report from Study
  Country: DE (occurrence: DE)
  Receive Date: 20140115
  Receipt Date: 20140115
  Transmission Date: 20141002
  Serious: Yes (Hospitalization, Other)
  Sender: FDA-Public Use
  Company Number: DE-ROCHE-1022201

PATIENT
  Age: 7 Year
  Sex: Female
  Weight: 16.6 kg

DRUGS (13)
  1. MYCOPHENOLATE MOFETIL [Suspect]
     Indication: RENAL TRANSPLANT
     Route: 048
     Dates: start: 20080521
  2. MYCOPHENOLATE MOFETIL [Suspect]
     Route: 048
  3. CEFTAZIDIME [Concomitant]
     Dosage: PER DAY
     Route: 042
     Dates: start: 20080629, end: 20080629
  4. URBASON (GERMANY) [Concomitant]
     Indication: PROPHYLAXIS
     Route: 048
     Dates: start: 20080521
  5. VALCYTE [Concomitant]
     Indication: PROPHYLAXIS
     Route: 048
     Dates: start: 20080521
  6. KEPINOL [Concomitant]
     Indication: PROPHYLAXIS
     Route: 065
     Dates: start: 20080521
  7. ASPIRIN [Concomitant]
     Indication: PROPHYLAXIS
     Route: 048
     Dates: start: 20080521
  8. ASPIRIN [Concomitant]
     Route: 048
     Dates: start: 20080531
  9. NATRIUM CHLORIDE [Concomitant]
     Indication: PROPHYLAXIS
     Route: 048
     Dates: start: 20080521
  10. NATRIUM CHLORIDE [Concomitant]
     Route: 048
     Dates: start: 20080530
  11. TACROLIMUS [Concomitant]
     Indication: PROPHYLAXIS
     Route: 048
     Dates: start: 20080521
  12. CO-TRIMOXAZOLE [Concomitant]
     Dosage: EVERY OTHER DAY
     Route: 065
     Dates: start: 20080525, end: 20080629
  13. CIPROFLOXACIN [Concomitant]
     Route: 048
     Dates: start: 20080629, end: 20080629

REACTIONS (2)
  - Pseudomonas infection [Recovered/Resolved]
  - Mental retardation [Unknown]
